FAERS Safety Report 4971730-8 (Version None)
Quarter: 2006Q2

REPORT INFORMATION
  Report Type: 
  Country: None (occurrence: None)
  Receive Date: 20060406
  Receipt Date: 20060316
  Transmission Date: 20061013
  Serious: Yes (Hospitalization)
  Sender: FDA-Public Use
  Company Number: US200603004809

PATIENT
  Age: 56 Year
  Sex: Male

DRUGS (8)
  1. HUMULIN U [Suspect]
     Indication: DIABETES MELLITUS
     Dates: start: 19980101
  2. HUMULIN R [Suspect]
     Indication: DIABETES MELLITUS
     Dates: start: 19980101
  3. ALBUTEROL [Concomitant]
  4. DIOVAN [Concomitant]
  5. ADVAIR (FLUTICASONE PROPIONATE, SLAMETEROL XINAFOATE) [Concomitant]
  6. DIAZEPAM [Concomitant]
  7. HYDROCODONE BITARTRATE [Concomitant]
  8. PROTONIX [Concomitant]

REACTIONS (1)
  - KNEE ARTHROPLASTY [None]
